FAERS Safety Report 25960438 (Version 1)
Quarter: 2025Q4

REPORT INFORMATION
  Report Type: Spontaneous
  Country: MX (occurrence: MX)
  Receive Date: 20251027
  Receipt Date: 20251027
  Transmission Date: 20260117
  Serious: Yes (Other)
  Sender: ALEXION PHARMACEUTICALS
  Company Number: MX-AstraZeneca-CH-00976546A

PATIENT
  Sex: Female
  Weight: 85 kg

DRUGS (4)
  1. DAPAGLIFLOZIN [Suspect]
     Active Substance: DAPAGLIFLOZIN
     Indication: Blood glucose increased
     Dosage: 10 MILLIGRAM, QD
     Route: 065
  2. TRENTAL [Concomitant]
     Active Substance: PENTOXIFYLLINE
     Indication: Peripheral vascular disorder
     Dosage: 400
     Route: 065
  3. INSULIN NOS [Concomitant]
     Active Substance: INSULIN NOS
     Dosage: 18, QD
     Route: 065
  4. FINERENONE [Concomitant]
     Active Substance: FINERENONE
     Dosage: 10 GRAM
     Route: 065

REACTIONS (6)
  - Off label use [Unknown]
  - Blood glucose abnormal [Unknown]
  - Blood pressure fluctuation [Unknown]
  - Eye disorder [Unknown]
  - Skin odour abnormal [Unknown]
  - Renal failure [Unknown]
